FAERS Safety Report 17767302 (Version 5)
Quarter: 2020Q4

REPORT INFORMATION
  Report Type: Spontaneous
  Country: US (occurrence: US)
  Receive Date: 20200511
  Receipt Date: 20201020
  Transmission Date: 20210113
  Serious: Yes (Other)
  Sender: FDA-Public Use
  Company Number: US-PFIZER INC-2020121368

PATIENT
  Age: 51 Year
  Sex: Female
  Weight: 79.38 kg

DRUGS (5)
  1. ESTRING [Suspect]
     Active Substance: ESTRADIOL
     Indication: VULVOVAGINAL DRYNESS
  2. NITROFUR [Concomitant]
     Active Substance: NITROFURANTOIN
     Indication: CYSTITIS
     Dosage: 50 MG, 1X/DAY(FOR 30 DAYS)
     Route: 048
  3. ESTRING [Suspect]
     Active Substance: ESTRADIOL
     Indication: HYSTERECTOMY
  4. TRIMETHOPRIM. [Concomitant]
     Active Substance: TRIMETHOPRIM
     Indication: CYSTITIS
     Dosage: 100 MG, 1X/DAY(FOR 30 DAYS)
     Route: 048
  5. ESTRING [Suspect]
     Active Substance: ESTRADIOL
     Indication: CYSTITIS
     Dosage: 2 MG, EVERY 3 MONTHS(INSERTED BY HER DOCTOR)
     Route: 067
     Dates: end: 201912

REACTIONS (10)
  - Vulvovaginal injury [Unknown]
  - Inflammation [Unknown]
  - Amaurosis fugax [Unknown]
  - Eye haemorrhage [Recovered/Resolved]
  - Drug effective for unapproved indication [Unknown]
  - Frustration tolerance decreased [Unknown]
  - Body height decreased [Unknown]
  - Blindness unilateral [Unknown]
  - Product use in unapproved indication [Unknown]
  - Off label use [Unknown]

NARRATIVE: CASE EVENT DATE: 202005
